FAERS Safety Report 4591955-3 (Version None)
Quarter: 2005Q1

REPORT INFORMATION
  Report Type: 
  Country: None (occurrence: None)
  Receive Date: 20050222
  Receipt Date: 20041222
  Transmission Date: 20050727
  Serious: Yes (Other)
  Sender: FDA-Public Use
  Company Number: 2004114052

PATIENT
  Sex: Female
  Weight: 58.9676 kg

DRUGS (5)
  1. ARTHROTEC [Suspect]
     Indication: ARTHRITIS
     Dosage: 100MG/400 MCG (2 IN 1 D), ORAL
     Route: 048
  2. RISEDRONATE SODIUM (RISEDRONATE SODIUM) [Suspect]
     Dosage: ORAL
     Route: 048
  3. RANTIDINIDE (RANITIDINE) [Concomitant]
  4. ISOSORBIDE (ISOSRBIDE) [Concomitant]
  5. METOPROLOL TARTRATE [Concomitant]

REACTIONS (4)
  - CHOKING [None]
  - FALL [None]
  - LOSS OF CONSCIOUSNESS [None]
  - MYOCARDIAL INFARCTION [None]
